FAERS Safety Report 21895351 (Version 1)
Quarter: 2023Q1

REPORT INFORMATION
  Report Type: Spontaneous
  Country: US (occurrence: US)
  Receive Date: 20230123
  Receipt Date: 20230123
  Transmission Date: 20230418
  Serious: No
  Sender: FDA-Public Use
  Company Number: US-SA-SAC20230117001263

PATIENT
  Age: 49 Year
  Sex: Male

DRUGS (1)
  1. AUBAGIO [Suspect]
     Active Substance: TERIFLUNOMIDE
     Indication: Multiple sclerosis
     Dosage: 1 DF, QD
     Route: 048
     Dates: start: 2021

REACTIONS (5)
  - Urinary tract infection [Not Recovered/Not Resolved]
  - Fatigue [Unknown]
  - Impaired work ability [Unknown]
  - Visual impairment [Unknown]
  - Depressed mood [Unknown]
